FAERS Safety Report 25930429 (Version 2)
Quarter: 2025Q4

REPORT INFORMATION
  Report Type: Spontaneous
  Country: CH (occurrence: CH)
  Receive Date: 20251016
  Receipt Date: 20251202
  Transmission Date: 20260117
  Serious: Yes (Death)
  Sender: ALEXION PHARMACEUTICALS
  Company Number: CH-ASTRAZENECA-202510EEA006948CH

PATIENT
  Sex: Male

DRUGS (1)
  1. SOLIRIS [Suspect]
     Active Substance: ECULIZUMAB
     Indication: Autoimmune haemolytic anaemia
     Dosage: 900 MILLIGRAM
     Route: 065

REACTIONS (2)
  - Death [Fatal]
  - Off label use [Unknown]
